FAERS Safety Report 16853531 (Version 13)
Quarter: 2020Q2

REPORT INFORMATION
  Report Type: Spontaneous
  Country: PL (occurrence: PL)
  Receive Date: 20190926
  Receipt Date: 20200604
  Transmission Date: 20200713
  Serious: Yes (Other)
  Sender: FDA-Public Use
  Company Number: PL-AUROBINDO-AUR-APL-2019-060662

PATIENT
  Age: 73 Year
  Sex: Male

DRUGS (27)
  1. NEBIVOLOL. [Suspect]
     Active Substance: NEBIVOLOL
     Indication: CARDIAC FAILURE
  2. ATORVASTATIN [Suspect]
     Active Substance: ATORVASTATIN
     Indication: CARDIAC FAILURE
  3. NAPROXEN. [Suspect]
     Active Substance: NAPROXEN
     Indication: ARTHRALGIA
     Dosage: UNK
     Route: 048
  4. PERINDOPRIL TABLET [Suspect]
     Active Substance: PERINDOPRIL
     Indication: CARDIAC FAILURE
  5. DICLOFENAC [Suspect]
     Active Substance: DICLOFENAC
     Indication: MUSCULAR WEAKNESS
     Dosage: THE DOSAGE DEPENDED ON THE SEVERITY OF THE PATIENT^S PAIN UNK
     Route: 061
  6. LOSARTAN POTASSIUM. [Suspect]
     Active Substance: LOSARTAN POTASSIUM
     Indication: HYPERTENSION
     Dosage: 100 MILLIGRAM, ONCE A DAY
     Route: 048
  7. ATORVASTATIN [Suspect]
     Active Substance: ATORVASTATIN
     Indication: HYPERTENSION
     Dosage: 20 MILLIGRAM, ONCE A DAY
     Route: 065
  8. NAPROXEN 220 MG [Suspect]
     Active Substance: NAPROXEN
     Indication: ARTHRALGIA
     Dosage: UNK
     Route: 061
  9. NEBIVOLOL. [Suspect]
     Active Substance: NEBIVOLOL
     Indication: HYPERTENSION
     Dosage: 5 MILLIGRAM, ONCE A DAY
     Route: 016
  10. PERINDOPRIL TABLET [Suspect]
     Active Substance: PERINDOPRIL
     Indication: HYPERTENSION
     Dosage: 5 MILLIGRAM, DAILY
     Route: 048
  11. ASA [Suspect]
     Active Substance: ASPIRIN
     Indication: CARDIAC FAILURE
     Dosage: 75 MILLIGRAM, ONCE A DAY
     Route: 065
  12. ATORVASTATIN [Suspect]
     Active Substance: ATORVASTATIN
     Indication: CARDIOVASCULAR DISORDER
  13. ASA [Suspect]
     Active Substance: ASPIRIN
     Indication: HYPERTENSION
  14. ASA [Suspect]
     Active Substance: ASPIRIN
     Indication: CARDIOVASCULAR DISORDER
  15. INDAPAMIDE. [Suspect]
     Active Substance: INDAPAMIDE
     Indication: CARDIOVASCULAR DISORDER
  16. NAPROXEN. [Suspect]
     Active Substance: NAPROXEN
     Indication: MUSCULAR WEAKNESS
     Dosage: UNK
     Route: 061
  17. NEBIVOLOL. [Suspect]
     Active Substance: NEBIVOLOL
     Indication: CARDIOVASCULAR DISORDER
  18. DICLOFENAC [Suspect]
     Active Substance: DICLOFENAC
     Indication: ARTHRALGIA
     Dosage: UNK
     Route: 048
  19. INDAPAMIDE. [Suspect]
     Active Substance: INDAPAMIDE
     Indication: HYPERTENSION
  20. POTASSIUM [Suspect]
     Active Substance: POTASSIUM
     Indication: HYPERTENSION
     Dosage: UNK
     Route: 065
  21. NAPROXEN 220 MG [Suspect]
     Active Substance: NAPROXEN
     Dosage: UNK
     Route: 048
  22. INDAPAMIDE. [Suspect]
     Active Substance: INDAPAMIDE
     Indication: CARDIAC FAILURE
     Dosage: 1.5 MILLIGRAM, ONCE A DAY
     Route: 065
  23. LOSARTAN POTASSIUM. [Suspect]
     Active Substance: LOSARTAN POTASSIUM
     Indication: CARDIAC FAILURE
  24. LOSARTAN POTASSIUM. [Suspect]
     Active Substance: LOSARTAN POTASSIUM
     Indication: CARDIOVASCULAR DISORDER
  25. INDAPAMIDE. [Concomitant]
     Active Substance: INDAPAMIDE
     Indication: HYPERTENSION
     Dosage: 1.5 MILLIGRAM, DAILY
     Route: 065
  26. LOSARTAN. [Suspect]
     Active Substance: LOSARTAN
     Indication: PRODUCT USED FOR UNKNOWN INDICATION
     Dosage: UNK
     Route: 065
  27. NAPROXEN. [Suspect]
     Active Substance: NAPROXEN
     Dosage: THE DOSAGE DEPENDED ON THE SEVERITY OF THE PATIENT^S PAIN
     Route: 061

REACTIONS (6)
  - Cough [Unknown]
  - Drug intolerance [Unknown]
  - Hyperkalaemia [Recovered/Resolved]
  - Electrocardiogram T wave amplitude increased [Unknown]
  - Muscular weakness [Recovered/Resolved]
  - Electrocardiogram T wave abnormal [Unknown]

NARRATIVE: CASE EVENT DATE: 2019
